FAERS Safety Report 6464124-X (Version None)
Quarter: 2009Q4

REPORT INFORMATION
  Report Type: 
  Country: None (occurrence: None)
  Receive Date: 20091201
  Receipt Date: 20091123
  Transmission Date: 20100525
  Serious: Yes (Other)
  Sender: FDA-Public Use
  Company Number: AT-ABBOTT-09P-009-0607325-00

PATIENT
  Sex: Female

DRUGS (5)
  1. HUMIRA [Suspect]
     Indication: MUSCULOSKELETAL PAIN
     Dates: start: 20050101, end: 20091001
  2. CORTISONE [Concomitant]
     Indication: DRUG USE FOR UNKNOWN INDICATION
  3. CORTISONE [Concomitant]
     Dosage: REDUCED DOSE
  4. SEDACORON [Concomitant]
     Indication: DRUG USE FOR UNKNOWN INDICATION
  5. BETA-BLOCKER [Concomitant]
     Indication: DRUG USE FOR UNKNOWN INDICATION

REACTIONS (7)
  - AGEUSIA [None]
  - DRY SKIN [None]
  - FUNGAL INFECTION [None]
  - HYPERTENSION [None]
  - PRURITUS GENERALISED [None]
  - URTICARIA [None]
  - VULVOVAGINAL MYCOTIC INFECTION [None]
